FAERS Safety Report 18607354 (Version 10)
Quarter: 2021Q3

REPORT INFORMATION
  Report Type: Report from Study
  Country: US (occurrence: US)
  Receive Date: 20201211
  Receipt Date: 20210810
  Transmission Date: 20211014
  Serious: No
  Sender: FDA-Public Use
  Company Number: NVSC2020US328382

PATIENT
  Sex: Female

DRUGS (4)
  1. COSENTYX [Suspect]
     Active Substance: SECUKINUMAB
     Indication: PSORIASIS
     Dosage: 150 MG, QW (ONCE WEEKLY FOR 5 WEEKS, THEN ONCE EVERY 4 WEEKS)
     Route: 058
  2. METHOTREXATE. [Suspect]
     Active Substance: METHOTREXATE
     Indication: PRODUCT USED FOR UNKNOWN INDICATION
     Dosage: UNK
     Route: 065
  3. COSENTYX [Suspect]
     Active Substance: SECUKINUMAB
     Indication: PSORIATIC ARTHROPATHY
     Dosage: 150 MG, QMO
     Route: 058
  4. COSENTYX [Suspect]
     Active Substance: SECUKINUMAB
     Indication: PSORIATIC ARTHROPATHY

REACTIONS (11)
  - Device difficult to use [Unknown]
  - Injection site pain [Not Recovered/Not Resolved]
  - Food craving [Unknown]
  - Abdominal pain upper [Unknown]
  - Tenderness [Unknown]
  - Flatulence [Unknown]
  - Musculoskeletal stiffness [Unknown]
  - Drug ineffective [Unknown]
  - Joint swelling [Unknown]
  - Malaise [Unknown]
  - Eructation [Unknown]
